FAERS Safety Report 5838610-7 (Version None)
Quarter: 2008Q3

REPORT INFORMATION
  Report Type: 
  Country: None (occurrence: None)
  Receive Date: 20080808
  Receipt Date: 20080530
  Transmission Date: 20090109
  Serious: No
  Sender: FDA-Public Use
  Company Number: A0730355A

PATIENT
  Sex: Female

DRUGS (1)
  1. ALTABAX [Suspect]
     Indication: DRUG USE FOR UNKNOWN INDICATION
     Route: 061
     Dates: start: 20080501

REACTIONS (1)
  - APPLICATION SITE IRRITATION [None]
